FAERS Safety Report 5144838-4 (Version None)
Quarter: 2006Q4

REPORT INFORMATION
  Report Type: 
  Country: None (occurrence: None)
  Receive Date: 20061107
  Receipt Date: 20060912
  Transmission Date: 20070319
  Serious: Yes (Life-Threatening)
  Sender: FDA-Public Use
  Company Number: JP-BRISTOL-MYERS SQUIBB COMPANY-13509575

PATIENT
  Age: 32 Year
  Sex: Male

DRUGS (6)
  1. TAXOL [Suspect]
     Indication: THYMOMA
     Route: 041
     Dates: start: 20060905, end: 20060905
  2. PARAPLATIN [Suspect]
     Indication: THYMOMA
     Route: 041
     Dates: start: 20060905, end: 20060905
  3. DECADRON [Concomitant]
     Dates: start: 20060905, end: 20060905
  4. ZANTAC [Concomitant]
     Dates: start: 20060905, end: 20060905
  5. CHLOR-TRIMETON [Concomitant]
     Dates: start: 20060905, end: 20060905
  6. ZOFRAN [Concomitant]
     Dates: start: 20060905, end: 20060905

REACTIONS (1)
  - LOSS OF CONSCIOUSNESS [None]
